FAERS Safety Report 6022839-1 (Version None)
Quarter: 2008Q4

REPORT INFORMATION
  Report Type: 
  Country: None (occurrence: None)
  Receive Date: 20081224
  Receipt Date: 20081224
  Transmission Date: 20090506
  Serious: No
  Sender: FDA-Public Use
  Company Number: None

PATIENT
  Age: 47 Year
  Sex: Female
  Weight: 77.1115 kg

DRUGS (2)
  1. PREDNISONE TAB [Suspect]
     Indication: AUTOIMMUNE THYROIDITIS
     Dosage: VARIOUS
     Dates: start: 20050401, end: 20070901
  2. MEDROL [Suspect]
     Indication: SINUS OPERATION
     Dosage: VARIOUS

REACTIONS (3)
  - ARTHRALGIA [None]
  - OSTEONECROSIS [None]
  - PELVIC PAIN [None]
